FAERS Safety Report 15173380 (Version 2)
Quarter: 2018Q3

REPORT INFORMATION
  Report Type: Spontaneous
  Country: JP (occurrence: JP)
  Receive Date: 20180720
  Receipt Date: 20180904
  Transmission Date: 20181010
  Serious: Yes (Death, Life-Threatening, Other)
  Sender: FDA-Public Use
  Company Number: JP-BAYER-2018-131845

PATIENT
  Age: 80 Year
  Sex: Male
  Weight: 62 kg

DRUGS (4)
  1. XOFIGO [Suspect]
     Active Substance: RADIUM RA-223 DICHLORIDE
     Indication: METASTASES TO BONE
     Dosage: UNK
     Route: 042
     Dates: start: 20180517, end: 20180517
  2. XOFIGO [Suspect]
     Active Substance: RADIUM RA-223 DICHLORIDE
     Indication: HORMONE-REFRACTORY PROSTATE CANCER
     Dosage: UNK
     Route: 042
     Dates: start: 20180419, end: 20180419
  3. XOFIGO [Suspect]
     Active Substance: RADIUM RA-223 DICHLORIDE
     Indication: HORMONE-REFRACTORY PROSTATE CANCER
     Dosage: UNK
     Route: 042
     Dates: start: 20180614, end: 20180614
  4. DENOSUMAB [Concomitant]
     Active Substance: DENOSUMAB
     Indication: METASTASES TO BONE
     Dosage: UNK
     Dates: start: 201608, end: 20180614

REACTIONS (8)
  - Brain herniation [None]
  - Hemiplegia [None]
  - Platelet count decreased [Not Recovered/Not Resolved]
  - Cerebral haemorrhage [None]
  - Subdural haematoma [Recovered/Resolved with Sequelae]
  - Sepsis [Fatal]
  - Cerebral infarction [Recovered/Resolved with Sequelae]
  - Altered state of consciousness [None]

NARRATIVE: CASE EVENT DATE: 20180621
